FAERS Safety Report 17022111 (Version 2)
Quarter: 2019Q4

REPORT INFORMATION
  Report Type: Report from Study
  Country: CA (occurrence: CA)
  Receive Date: 20191112
  Receipt Date: 20191112
  Transmission Date: 20200122
  Serious: Yes (Hospitalization, Other)
  Sender: FDA-Public Use
  Company Number: NVSC2019CA026055

PATIENT
  Age: 47 Year
  Sex: Male
  Weight: 120 kg

DRUGS (10)
  1. HYDROXYUREA. [Suspect]
     Active Substance: HYDROXYUREA
     Indication: MYELOPROLIFERATIVE NEOPLASM
     Dosage: 1500 MG, QD
     Route: 048
  2. PANTOPRAZOLE [Suspect]
     Active Substance: PANTOPRAZOLE
     Dosage: 40 MG, BID
     Route: 048
  3. HYDROXYUREA. [Suspect]
     Active Substance: HYDROXYUREA
     Dosage: 2000 MG, QD
     Route: 048
  4. METFORMIN [Suspect]
     Active Substance: METFORMIN HYDROCHLORIDE
     Indication: PRODUCT USED FOR UNKNOWN INDICATION
     Dosage: 1000 MG, BID
     Route: 048
  5. ROSUVASTATIN. [Suspect]
     Active Substance: ROSUVASTATIN
     Indication: PRODUCT USED FOR UNKNOWN INDICATION
     Dosage: 10 MG, QD
     Route: 065
  6. PANTOPRAZOLE [Suspect]
     Active Substance: PANTOPRAZOLE
     Indication: GASTROOESOPHAGEAL REFLUX DISEASE
     Dosage: 40 MG, QD
     Route: 048
  7. ALLOPURINOL. [Suspect]
     Active Substance: ALLOPURINOL
     Indication: PRODUCT USED FOR UNKNOWN INDICATION
     Dosage: 300 MG, QD
     Route: 048
  8. ASA [Suspect]
     Active Substance: ASPIRIN
     Indication: PRODUCT USED FOR UNKNOWN INDICATION
     Dosage: 81 MG, QD
     Route: 048
  9. PENICILLIN [Suspect]
     Active Substance: PENICILLIN
     Indication: PRODUCT USED FOR UNKNOWN INDICATION
     Route: 065
  10. AMLODIPINE [Suspect]
     Active Substance: AMLODIPINE BESYLATE
     Indication: PRODUCT USED FOR UNKNOWN INDICATION
     Dosage: 5 MG, QD
     Route: 065

REACTIONS (26)
  - Ureterolithiasis [Unknown]
  - Asthenia [Unknown]
  - Leukocytosis [Not Recovered/Not Resolved]
  - Marrow hyperplasia [Unknown]
  - Heart rate increased [Unknown]
  - Serum ferritin increased [Unknown]
  - Abdominal pain lower [Unknown]
  - Skin mass [Unknown]
  - Blood lactate dehydrogenase increased [Unknown]
  - Splenomegaly [Unknown]
  - Hepatic steatosis [Unknown]
  - Anaemia [Unknown]
  - Night sweats [Unknown]
  - Acute kidney injury [Unknown]
  - Myelofibrosis [Unknown]
  - Flank pain [Unknown]
  - Cough [Unknown]
  - Blood uric acid increased [Unknown]
  - Hydronephrosis [Recovering/Resolving]
  - Splenic infarction [Unknown]
  - Abdominal pain upper [Unknown]
  - Chest discomfort [Unknown]
  - Gastrooesophageal reflux disease [Unknown]
  - Abdominal pain [Unknown]
  - Differential white blood cell count abnormal [Unknown]
  - Palpitations [Unknown]

NARRATIVE: CASE EVENT DATE: 20190711
